FAERS Safety Report 6385762-9 (Version None)
Quarter: 2009Q4

REPORT INFORMATION
  Report Type: 
  Country: None (occurrence: None)
  Receive Date: 20091002
  Receipt Date: 20080926
  Transmission Date: 20100525
  Serious: No
  Sender: FDA-Public Use
  Company Number: US-ASTRAZENECA-2008UW20640

PATIENT
  Age: 56 Year
  Sex: Female

DRUGS (5)
  1. ARIMIDEX [Suspect]
     Indication: BREAST CANCER
     Route: 048
     Dates: start: 20070301
  2. LISINOPRIL [Concomitant]
  3. GLUCOSAMINE/CONDROITIN [Concomitant]
  4. CALCIUM [Concomitant]
  5. IMODIUM [Concomitant]

REACTIONS (5)
  - DIARRHOEA [None]
  - DIZZINESS [None]
  - HOT FLUSH [None]
  - NAUSEA [None]
  - TENDONITIS [None]
